FAERS Safety Report 6896744-2 (Version None)
Quarter: 2010Q3

REPORT INFORMATION
  Report Type: 
  Country: None (occurrence: None)
  Receive Date: 20100802
  Receipt Date: 20071126
  Transmission Date: 20110219
  Serious: No
  Sender: FDA-Public Use
  Company Number: US-PFIZER INC-2007007351

PATIENT
  Sex: Female
  Weight: 63.5 kg

DRUGS (3)
  1. LYRICA [Suspect]
     Indication: NEURALGIA
     Dates: start: 20060927
  2. VITAMINS [Concomitant]
  3. MINERALS NOS [Concomitant]

REACTIONS (2)
  - VISION BLURRED [None]
  - WEIGHT INCREASED [None]
